FAERS Safety Report 4365182-9 (Version None)
Quarter: 2004Q2

REPORT INFORMATION
  Report Type: 
  Country: None (occurrence: None)
  Receive Date: 20040521
  Receipt Date: 20040517
  Transmission Date: 20050107
  Serious: Yes (Life-Threatening, Other)
  Sender: FDA-Public Use
  Company Number: FRWYE763217MAY04

PATIENT
  Age: 65 Year
  Sex: Female

DRUGS (6)
  1. TAZOCILLINE (PIPERACILLIN/TAZOBACTAM, INJECTION) [Suspect]
     Indication: PERITONITIS
     Dosage: 4 G 4 X PER 1 DAY
     Route: 042
     Dates: start: 20031205
  2. LEXOMIL (BROMAZEPAM) [Suspect]
     Dosage: 1 DOSE 1 X PER 1 DAY
     Route: 048
     Dates: start: 20031222
  3. NICARDIPINE HCL [Suspect]
     Indication: HYPERTENSION
     Dosage: 20 MG 1 X PER 1 DAT
     Route: 048
     Dates: start: 20040102
  4. OMEPRAZOLE [Suspect]
     Dosage: 20 MG 1 X PER 1 DAY
     Route: 048
     Dates: start: 20031214
  5. PROZAC [Suspect]
     Route: 048
     Dates: start: 20031224
  6. STILNOX (ZOLPIDEM) [Suspect]
     Dosage: 10 MG 1 X PER 1 DAY
     Route: 048
     Dates: start: 20031222

REACTIONS (7)
  - CHOLESTASIS [None]
  - EOSINOPHILIA [None]
  - LYMPHADENOPATHY [None]
  - PURPURA [None]
  - PYREXIA [None]
  - RASH MACULO-PAPULAR [None]
  - RASH PRURITIC [None]
